FAERS Safety Report 6028154-4 (Version None)
Quarter: 2008Q4

REPORT INFORMATION
  Report Type: 
  Country: None (occurrence: None)
  Receive Date: 20081231
  Receipt Date: 20081231
  Transmission Date: 20090506
  Serious: Yes (Hospitalization)
  Sender: FDA-Public Use
  Company Number: None

PATIENT
  Sex: Male
  Weight: 90 kg

DRUGS (3)
  1. ELOXATIN [Suspect]
     Dosage: 170 MG
     Dates: start: 20081203, end: 20081203
  2. FLUOROURACIL [Suspect]
     Dosage: 5710 MG
     Dates: end: 20081203
  3. LEUCOVORIN CALCIUM [Suspect]
     Dosage: 815 MG
     Dates: end: 20081203

REACTIONS (14)
  - ABDOMINAL DISCOMFORT [None]
  - ABDOMINAL PAIN [None]
  - ALANINE AMINOTRANSFERASE [None]
  - ASPARTATE AMINOTRANSFERASE INCREASED [None]
  - DECREASED APPETITE [None]
  - FALL [None]
  - GINGIVAL BLEEDING [None]
  - LEUKOCYTOSIS [None]
  - MUCOSAL DRYNESS [None]
  - NAUSEA [None]
  - RENAL FAILURE [None]
  - SEPSIS [None]
  - THROMBOCYTOPENIA [None]
  - VOMITING [None]
